FAERS Safety Report 6130087-X (Version None)
Quarter: 2009Q1

REPORT INFORMATION
  Report Type: 
  Country: None (occurrence: None)
  Receive Date: 20090324
  Receipt Date: 20090317
  Transmission Date: 20090719
  Serious: Yes (Life-Threatening, Disabling)
  Sender: FDA-Public Use
  Company Number: GB-ELI_LILLY_AND_COMPANY-GB200903004085

PATIENT
  Age: 34 Year
  Sex: Male
  Weight: 81 kg

DRUGS (4)
  1. FLUOXETINE [Suspect]
     Indication: DEPRESSION
     Dosage: 20 MG, UNK
     Route: 048
     Dates: start: 20081204, end: 20090101
  2. FLUOXETINE [Suspect]
     Dosage: 80 MG, UNK
     Route: 048
     Dates: start: 20090101, end: 20090101
  3. AMITRIPTYLINE [Concomitant]
     Indication: DEPRESSION
     Dosage: 50 MG, DAILY (1/D)
     Route: 048
     Dates: start: 20090205, end: 20090201
  4. AMITRIPTYLINE [Concomitant]
     Dosage: 150 MG, DAILY (1/D)
     Route: 048
     Dates: start: 20090201, end: 20090213

REACTIONS (1)
  - EPILEPSY [None]
